FAERS Safety Report 9936875 (Version 2)
Quarter: 2014Q2

REPORT INFORMATION
  Report Type: Spontaneous
  Country: US (occurrence: None)
  Receive Date: 20140115
  Receipt Date: 20140411
  Transmission Date: 20141212
  Serious: Yes (Other)
  Sender: FDA-Public Use
  Company Number: 2013US002884

PATIENT
  Age: 24 Year
  Sex: Female
  Weight: 76.2 kg

DRUGS (1)
  1. ICLUSIG (PONATINIB) [Suspect]
     Indication: PRODUCT USED FOR UNKNOWN INDICATION
     Route: 048
     Dates: start: 201310

REACTIONS (1)
  - Neoplasm progression [None]
